FAERS Safety Report 16844096 (Version 2)
Quarter: 2019Q4

REPORT INFORMATION
  Report Type: Spontaneous
  Country: US (occurrence: US)
  Receive Date: 20190924
  Receipt Date: 20191118
  Transmission Date: 20200122
  Serious: Yes (Death, Hospitalization, Other)
  Sender: FDA-Public Use
  Company Number: US-PFIZER INC-2019408669

PATIENT
  Age: 74 Year
  Sex: Male

DRUGS (2)
  1. DAURISMO [Suspect]
     Active Substance: GLASDEGIB
     Indication: LEUKAEMIA RECURRENT
     Dosage: 100 MG, CYCLIC (DAILY, D1-28)
     Route: 048
     Dates: start: 20190525, end: 20190613
  2. CYTARABINE. [Suspect]
     Active Substance: CYTARABINE
     Indication: LEUKAEMIA RECURRENT
     Dosage: 20 MG, CYCLIC (Q12 (EVERY 12) D1-10)
     Route: 058
     Dates: start: 20190525, end: 20190613

REACTIONS (4)
  - Infection [Fatal]
  - Physical deconditioning [Fatal]
  - Neoplasm progression [Fatal]
  - Febrile neutropenia [Unknown]

NARRATIVE: CASE EVENT DATE: 20190601
